FAERS Safety Report 15802796 (Version 1)
Quarter: 2019Q1

REPORT INFORMATION
  Report Type: Spontaneous
  Country: PL (occurrence: PL)
  Receive Date: 20190109
  Receipt Date: 20190109
  Transmission Date: 20190417
  Serious: Yes (Other)
  Sender: FDA-Public Use
  Company Number: PL-ROCHE-2242200

PATIENT
  Sex: Female

DRUGS (3)
  1. ROACTEMRA [Suspect]
     Active Substance: TOCILIZUMAB
     Route: 042
     Dates: start: 20181206
  2. ROACTEMRA [Suspect]
     Active Substance: TOCILIZUMAB
     Route: 042
     Dates: start: 20190103
  3. ROACTEMRA [Suspect]
     Active Substance: TOCILIZUMAB
     Indication: RHEUMATOID ARTHRITIS
     Route: 042
     Dates: start: 201811

REACTIONS (6)
  - Pain [Unknown]
  - Gait disturbance [Unknown]
  - Ill-defined disorder [Unknown]
  - Ill-defined disorder [Unknown]
  - Muscular weakness [Unknown]
  - Gait inability [Unknown]

NARRATIVE: CASE EVENT DATE: 201812
